FAERS Safety Report 5513271-5 (Version None)
Quarter: 2007Q4

REPORT INFORMATION
  Report Type: 
  Country: None (occurrence: None)
  Receive Date: 20071108
  Receipt Date: 20071101
  Transmission Date: 20080405
  Serious: Yes (Other)
  Sender: FDA-Public Use
  Company Number: 070130

PATIENT
  Age: 57 Year
  Sex: Female
  Weight: 81.6475 kg

DRUGS (1)
  1. HALFLYTELY [Suspect]
     Indication: COLONOSCOPY
     Dosage: 20 MG/2 L, 1X, PO
     Route: 048
     Dates: start: 20070621

REACTIONS (2)
  - ASTHENIA [None]
  - CLOSTRIDIUM DIFFICILE COLITIS [None]
